FAERS Safety Report 18635227 (Version 1)
Quarter: 2020Q4

REPORT INFORMATION
  Report Type: Report from Study
  Country: US (occurrence: US)
  Receive Date: 20201218
  Receipt Date: 20201218
  Transmission Date: 20210114
  Serious: Yes (Other)
  Sender: FDA-Public Use
  Company Number: US-JNJFOC-20201226567

PATIENT
  Age: 38 Year
  Sex: Male

DRUGS (4)
  1. SPRAVATO [Suspect]
     Active Substance: ESKETAMINE
     Indication: DEPRESSION
     Dates: start: 20201120
  2. SPRAVATO [Suspect]
     Active Substance: ESKETAMINE
     Dates: start: 20201208
  3. SPRAVATO [Suspect]
     Active Substance: ESKETAMINE
     Dates: start: 20201123
  4. SPRAVATO [Suspect]
     Active Substance: ESKETAMINE
     Dates: start: 20201210

REACTIONS (2)
  - Dysphoria [Recovered/Resolved]
  - Dissociation [Recovered/Resolved]

NARRATIVE: CASE EVENT DATE: 20201210
